FAERS Safety Report 7743406 (Version 3)
Quarter: 2013Q4

REPORT INFORMATION
  Report Type: Spontaneous
  Country: NL (occurrence: NL)
  Receive Date: 20101229
  Receipt Date: 20131020
  Transmission Date: 20140711
  Serious: Yes (Other)
  Sender: FDA-Public Use
  Company Number: NL-TEVA-261014ISR

PATIENT
  Age: 69 Year
  Sex: Female

DRUGS (8)
  1. MICONAZOLE [Suspect]
     Indication: FUNGAL INFECTION
     Dosage: 20MG/G
     Route: 061
  2. ACENOCOUMAROL [Interacting]
  3. METFORMIN [Concomitant]
  4. FOSINOPRIL [Concomitant]
  5. CHLORTALIDONE [Concomitant]
  6. METOPROLOL [Concomitant]
  7. GLIMEPIRIDE [Concomitant]
  8. BISACODYL [Concomitant]

REACTIONS (3)
  - Coagulation test abnormal [Unknown]
  - Drug interaction [Unknown]
  - International normalised ratio increased [Unknown]
